FAERS Safety Report 12664977 (Version 2)
Quarter: 2016Q4

REPORT INFORMATION
  Report Type: Spontaneous
  Country: US (occurrence: US)
  Receive Date: 20160818
  Receipt Date: 20161108
  Transmission Date: 20170207
  Serious: Yes (Hospitalization, Disabling)
  Sender: FDA-Public Use
  Company Number: US-ENDO PHARMACEUTICALS INC.-2016-005181

PATIENT
  Age: 66 Year
  Sex: Male
  Weight: 108.96 kg

DRUGS (5)
  1. TESTIM [Suspect]
     Active Substance: TESTOSTERONE
     Dosage: APPROXIMATELY ONE TUBE DAILY
     Route: 062
     Dates: start: 201401, end: 201402
  2. ANDROGEL [Suspect]
     Active Substance: TESTOSTERONE
     Indication: ANDROGEN REPLACEMENT THERAPY
     Dosage: APPROXIMATELY FOUR PUMPS ONCE DAILY
     Route: 065
     Dates: start: 201212, end: 201306
  3. ANDROGEL [Suspect]
     Active Substance: TESTOSTERONE
     Dosage: APPROXIMATELY FOUR PUMPS ONCE DAILY
     Route: 065
     Dates: start: 201308, end: 201312
  4. TESTIM [Suspect]
     Active Substance: TESTOSTERONE
     Indication: ANDROGEN REPLACEMENT THERAPY
     Dosage: APPROXIMATELY ONE TUBE DAILY
     Route: 062
     Dates: start: 201202, end: 201212
  5. ANDROGEL [Suspect]
     Active Substance: TESTOSTERONE
     Dosage: APPROXIMATELY FOUR PUMPS ONCE DAILY
     Route: 065
     Dates: start: 201307, end: 201307

REACTIONS (3)
  - Acute myocardial infarction [Not Recovered/Not Resolved]
  - Gout [Unknown]
  - Arthritis [Unknown]

NARRATIVE: CASE EVENT DATE: 20130811
